FAERS Safety Report 7178150-9 (Version None)
Quarter: 2010Q4

REPORT INFORMATION
  Report Type: 
  Country: None (occurrence: None)
  Receive Date: 20101220
  Receipt Date: 20101213
  Transmission Date: 20110411
  Serious: Yes (Other)
  Sender: FDA-Public Use
  Company Number: B0687235A

PATIENT
  Age: 59 Year

DRUGS (4)
  1. LAMICTAL [Suspect]
     Dosage: 200MG PER DAY
     Route: 048
  2. PLAVIX [Suspect]
     Route: 048
  3. PHENYTOIN [Concomitant]
     Route: 048
  4. PHENOBARBITAL [Concomitant]
     Route: 048

REACTIONS (3)
  - CONVULSION [None]
  - DRUG LEVEL CHANGED [None]
  - SOMNOLENCE [None]
